FAERS Safety Report 24994820 (Version 1)
Quarter: 2025Q1

REPORT INFORMATION
  Report Type: Spontaneous
  Country: US (occurrence: None)
  Receive Date: 20250220
  Receipt Date: 20250220
  Transmission Date: 20250409
  Serious: No
  Sender: FDA-CTU
  Company Number: None

PATIENT

DRUGS (1)
  1. RINVOQ [Suspect]
     Active Substance: UPADACITINIB

REACTIONS (8)
  - Apraxia [None]
  - Dyskinesia [None]
  - Finger deformity [None]
  - Gait disturbance [None]
  - Chest pain [None]
  - Dyspnoea [None]
  - Fluid retention [None]
  - Sepsis [None]
